FAERS Safety Report 9525960 (Version 1)
Quarter: 2013Q1

REPORT INFORMATION
  Report Type: Spontaneous
  Country: US (occurrence: None)
  Receive Date: 20130314
  Receipt Date: 20130314
  Transmission Date: 20140127
  Serious: No
  Sender: FDA-Public Use
  Company Number: 1301USA001799

PATIENT
  Age: 50 Year
  Sex: Male
  Weight: 75.3 kg

DRUGS (4)
  1. VICTRELIS [Suspect]
     Route: 048
  2. PEGASYS [Suspect]
     Route: 058
  3. RIBAPAK (RIBAVIRIN) [Suspect]
     Dosage: UNK, QD, ORAL
     Route: 048
  4. LISINOPRIL (LISINOPRIL) TABLET, 10 MG [Concomitant]

REACTIONS (1)
  - Haemoglobin decreased [None]
